FAERS Safety Report 8152556 (Version 3)
Quarter: 2013Q3

REPORT INFORMATION
  Report Type: Spontaneous
  Country: US (occurrence: US)
  Receive Date: 20110922
  Receipt Date: 20130911
  Transmission Date: 20140515
  Serious: Yes (Hospitalization, Other)
  Sender: FDA-Public Use
  Company Number: US-ASTRAZENECA-2011SE12651

PATIENT
  Age: 26 Year
  Sex: Female

DRUGS (6)
  1. SEROQUEL [Suspect]
     Route: 048
     Dates: start: 20081223
  2. LEXAPRO [Concomitant]
  3. LORAZEPAM [Concomitant]
     Dosage: 1 MG TWO TIMES A DAY AS PER NEEDED
  4. WELLBUTRIN XL [Concomitant]
  5. MIRALAX [Concomitant]
  6. TRAMADOL [Concomitant]
     Indication: PAIN
     Dosage: 1 OR 2 EVERY 6 HOURS AS PER NEEDED

REACTIONS (3)
  - Pancreatitis [Unknown]
  - Diabetic coma [Unknown]
  - Type 2 diabetes mellitus [Unknown]
